FAERS Safety Report 23746016 (Version 2)
Quarter: 2024Q2

REPORT INFORMATION
  Report Type: Spontaneous
  Country: US (occurrence: US)
  Receive Date: 20240416
  Receipt Date: 20240628
  Transmission Date: 20240715
  Serious: No
  Sender: FDA-Public Use
  Company Number: US-ABBVIE-5719076

PATIENT
  Sex: Female

DRUGS (1)
  1. REFRESH RELIEVA PF [Suspect]
     Active Substance: CARBOXYMETHYLCELLULOSE SODIUM\GLYCERIN
     Indication: Dry eye
     Dosage: BOTTLE DELIVERY SYSTEM, FORM STRENGTH: CMC;GLYCERIN 0.5 %
     Route: 047

REACTIONS (3)
  - Hand fracture [Unknown]
  - Grip strength decreased [Not Recovered/Not Resolved]
  - Product container issue [Not Recovered/Not Resolved]
